FAERS Safety Report 18550209 (Version 11)
Quarter: 2023Q1

REPORT INFORMATION
  Report Type: Spontaneous
  Country: GB (occurrence: GB)
  Receive Date: 20201126
  Receipt Date: 20230111
  Transmission Date: 20230418
  Serious: Yes (Hospitalization, Other)
  Sender: FDA-Public Use
  Company Number: GB-CELGENE-GBR-2016126775

PATIENT

DRUGS (23)
  1. DICLOFENAC [Suspect]
     Active Substance: DICLOFENAC
     Indication: Plasma cell myeloma
     Dosage: 40 MG, WE (1 TIME EVERY 1 WEEK)
     Route: 048
     Dates: start: 20161130
  2. DICLOFENAC [Suspect]
     Active Substance: DICLOFENAC
     Dosage: 6 MG
     Route: 048
  3. DICLOFENAC [Suspect]
     Active Substance: DICLOFENAC
     Dosage: 60 MG
     Route: 048
  4. DARZALEX [Suspect]
     Active Substance: DARATUMUMAB
     Indication: Plasma cell myeloma
     Dosage: 1480 MG, WE
     Route: 042
     Dates: start: 20161130, end: 20161214
  5. REVLIMID [Suspect]
     Active Substance: LENALIDOMIDE
     Indication: Plasma cell myeloma
     Dosage: 525 MG, 28D CYCLE
     Route: 048
     Dates: start: 20161130
  6. REVLIMID [Suspect]
     Active Substance: LENALIDOMIDE
     Dosage: 25 MG
     Route: 048
     Dates: start: 20161130, end: 20161219
  7. REVLIMID [Suspect]
     Active Substance: LENALIDOMIDE
     Dosage: 19 MG
     Route: 048
     Dates: start: 20161214, end: 20161214
  8. REVLIMID [Suspect]
     Active Substance: LENALIDOMIDE
     Dosage: 25 MG, 28D CYCLE
     Route: 048
     Dates: start: 20161130, end: 20161219
  9. REVLIMID [Suspect]
     Active Substance: LENALIDOMIDE
     Dosage: UNK
     Route: 065
     Dates: start: 20161214, end: 20161214
  10. DEXAMETHASONE [Suspect]
     Active Substance: DEXAMETHASONE
     Indication: Plasma cell myeloma
     Dosage: 40 MG, WE
     Route: 042
     Dates: start: 20161130, end: 20161214
  11. DEXAMETHASONE [Suspect]
     Active Substance: DEXAMETHASONE
     Dosage: 40 MG, QD
     Route: 042
     Dates: start: 20161214, end: 20161214
  12. CIPROFLOXACIN [Concomitant]
     Active Substance: CIPROFLOXACIN
     Indication: Product used for unknown indication
     Dosage: 500 MG, QD, (1000 MILLIGRAM)
     Route: 065
     Dates: start: 20170316, end: 20170606
  13. TAMSULOSIN [Concomitant]
     Active Substance: TAMSULOSIN
     Indication: Urinary retention
     Dosage: 400 ?G, QD
     Route: 065
     Dates: start: 20170313
  14. OMEPRAZOLE [Concomitant]
     Active Substance: OMEPRAZOLE
     Indication: Plasma cell myeloma
     Dosage: 20 MG
     Route: 016
     Dates: start: 20161130
  15. AMOXICILLIN [Concomitant]
     Active Substance: AMOXICILLIN
     Indication: Product used for unknown indication
     Dosage: 1 G, QD (3 G)
     Route: 065
     Dates: start: 20170312, end: 20180316
  16. GENTAMICIN [Concomitant]
     Active Substance: GENTAMICIN
     Indication: Product used for unknown indication
     Dosage: 560 MG, QD
     Route: 065
     Dates: start: 20170312, end: 20180515
  17. HYDROCORTISONE [Concomitant]
     Active Substance: HYDROCORTISONE
     Indication: Flushing
     Dosage: 100 MG
     Route: 065
     Dates: start: 20170309, end: 20170309
  18. METRONIDAZOLE [Concomitant]
     Active Substance: METRONIDAZOLE
     Indication: Product used for unknown indication
     Dosage: 500 MG, QD (1500 MG)
     Route: 065
     Dates: start: 20170312, end: 20180315
  19. ALLOPURINOL [Concomitant]
     Active Substance: ALLOPURINOL
     Indication: Chemotherapy
     Dosage: 300 MG, QD
     Route: 048
     Dates: start: 20161130
  20. AMOXICILLIN\CLAVULANATE POTASSIUM [Concomitant]
     Active Substance: AMOXICILLIN\CLAVULANATE POTASSIUM
     Indication: Prophylaxis
     Dosage: 625 MG, QD (1875 MILLIGRAM)
     Route: 065
     Dates: start: 20170316, end: 20171202
  21. ZOMETA [Concomitant]
     Active Substance: ZOLEDRONIC ACID
     Indication: Product used for unknown indication
     Dosage: UNK
     Route: 016
     Dates: start: 20170113
  22. PIPERACILLIN SODIUM\TAZOBACTAM SODIUM [Concomitant]
     Active Substance: PIPERACILLIN SODIUM\TAZOBACTAM SODIUM
     Indication: Pyrexia
     Dosage: 4.5 G
     Route: 065
     Dates: start: 20170312, end: 20180312
  23. CHLORPHENIRAMINE MALEATE [Concomitant]
     Active Substance: CHLORPHENIRAMINE MALEATE
     Indication: Flushing
     Dosage: 10 MG
     Route: 065
     Dates: start: 20170309, end: 20170309

REACTIONS (6)
  - Diverticular perforation [Recovered/Resolved]
  - Pulmonary embolism [Recovered/Resolved]
  - Back pain [Recovering/Resolving]
  - Hypoaesthesia [Not Recovered/Not Resolved]
  - Intentional product use issue [Unknown]
  - Off label use [Unknown]

NARRATIVE: CASE EVENT DATE: 20161130
